FAERS Safety Report 6200672-5 (Version None)
Quarter: 2009Q2

REPORT INFORMATION
  Report Type: 
  Country: None (occurrence: None)
  Receive Date: 20090522
  Receipt Date: 20090519
  Transmission Date: 20091009
  Serious: Yes (Death)
  Sender: FDA-Public Use
  Company Number: CA-ABBOTT-09P-028-0575294-00

PATIENT

DRUGS (1)
  1. BIAXIN [Suspect]
     Indication: DRUG USE FOR UNKNOWN INDICATION

REACTIONS (1)
  - MYOCARDIAL INFARCTION [None]
